FAERS Safety Report 23082993 (Version 1)
Quarter: 2023Q4

REPORT INFORMATION
  Report Type: Spontaneous
  Country: US (occurrence: None)
  Receive Date: 20231017
  Receipt Date: 20231017
  Transmission Date: 20240110
  Serious: Yes (Hospitalization)
  Sender: FDA-Public Use
  Company Number: None

PATIENT
  Age: 74 Year
  Sex: Male

DRUGS (1)
  1. APIXABAN [Suspect]
     Active Substance: APIXABAN
     Dates: start: 20220804, end: 20230125

REACTIONS (2)
  - Gastrointestinal haemorrhage [None]
  - Duodenal ulcer haemorrhage [None]

NARRATIVE: CASE EVENT DATE: 20230130
